FAERS Safety Report 24007823 (Version 3)
Quarter: 2024Q3

REPORT INFORMATION
  Report Type: Spontaneous
  Country: US (occurrence: US)
  Receive Date: 20240625
  Receipt Date: 20240902
  Transmission Date: 20241017
  Serious: Yes (Other)
  Sender: JOHNSON AND JOHNSON
  Company Number: US-JNJFOC-20240646000

PATIENT
  Age: 51 Year
  Sex: Female

DRUGS (1)
  1. SIMPONI [Suspect]
     Active Substance: GOLIMUMAB
     Indication: Product used for unknown indication
     Dosage: THERAPY START DATE- 10 YEARS AGO
     Route: 058

REACTIONS (4)
  - Autoimmune disorder [Unknown]
  - Intermenstrual bleeding [Unknown]
  - Hepatic enzyme increased [Unknown]
  - Dizziness [Unknown]
